FAERS Safety Report 19152146 (Version 1)
Quarter: 2021Q2

REPORT INFORMATION
  Report Type: Report from Study
  Country: US (occurrence: US)
  Receive Date: 20210419
  Receipt Date: 20210419
  Transmission Date: 20210717
  Serious: Yes (Death, Other)
  Sender: FDA-Public Use
  Company Number: US-GILEAD-2021-0525786

PATIENT
  Age: 71 Year
  Sex: Female

DRUGS (24)
  1. FOLIC ACID. [Concomitant]
     Active Substance: FOLIC ACID
  2. FUROSEMIDE. [Concomitant]
     Active Substance: FUROSEMIDE
  3. METOPROLOL TARTRATE. [Concomitant]
     Active Substance: METOPROLOL TARTRATE
  4. WELLBUTRIN [Concomitant]
     Active Substance: BUPROPION HYDROCHLORIDE
  5. AMOXICILLIN. [Concomitant]
     Active Substance: AMOXICILLIN
  6. EFFEXOR [Concomitant]
     Active Substance: VENLAFAXINE HYDROCHLORIDE
  7. IMITREX [Concomitant]
     Active Substance: SUMATRIPTAN SUCCINATE
  8. LORAZEPAM. [Concomitant]
     Active Substance: LORAZEPAM
  9. TRAMADOL. [Concomitant]
     Active Substance: TRAMADOL
  10. FERROUS SULFATE. [Concomitant]
     Active Substance: FERROUS SULFATE
  11. PRILOSEC [Concomitant]
     Active Substance: OMEPRAZOLE MAGNESIUM
  12. CRESTOR [Concomitant]
     Active Substance: ROSUVASTATIN CALCIUM
  13. ELIQUIS [Concomitant]
     Active Substance: APIXABAN
  14. ADVIL [Concomitant]
     Active Substance: IBUPROFEN
  15. ALLOPURINOL. [Concomitant]
     Active Substance: ALLOPURINOL
  16. LEVOTHYROXINE. [Concomitant]
     Active Substance: LEVOTHYROXINE
  17. LOSARTAN. [Concomitant]
     Active Substance: LOSARTAN
  18. TYVASO [Concomitant]
     Active Substance: TREPROSTINIL
  19. VITAMIN D3 [Concomitant]
     Active Substance: CHOLECALCIFEROL
  20. BIOTIN [Concomitant]
     Active Substance: BIOTIN
  21. SEROQUEL [Concomitant]
     Active Substance: QUETIAPINE FUMARATE
  22. AMBRISENTAN [Suspect]
     Active Substance: AMBRISENTAN
     Indication: PULMONARY HYPERTENSION
     Dosage: 10 MG, QD
     Route: 065
  23. REMODULIN [Concomitant]
     Active Substance: TREPROSTINIL
  24. TYLENOL [Concomitant]
     Active Substance: ACETAMINOPHEN

REACTIONS (1)
  - Death [Fatal]
